FAERS Safety Report 6715501-0 (Version None)
Quarter: 2010Q2

REPORT INFORMATION
  Report Type: 
  Country: None (occurrence: None)
  Receive Date: 20100507
  Receipt Date: 20100426
  Transmission Date: 20101027
  Serious: Yes (Hospitalization)
  Sender: FDA-Public Use
  Company Number: PHHY2010NL26920

PATIENT
  Sex: Male

DRUGS (4)
  1. GLEEVEC [Suspect]
     Indication: CHRONIC MYELOID LEUKAEMIA
     Dosage: 400 MG, UNK
     Dates: start: 20010508
  2. GLEEVEC [Suspect]
     Dosage: 600 MG, UNK
  3. GLEEVEC [Suspect]
     Dosage: 800 MG, UNK
     Dates: end: 20091106
  4. SPRYCEL [Suspect]

REACTIONS (4)
  - BLOOD TEST ABNORMAL [None]
  - DRUG RESISTANCE [None]
  - FATIGUE [None]
  - HAEMOPTYSIS [None]
